FAERS Safety Report 23955618 (Version 5)
Quarter: 2024Q3

REPORT INFORMATION
  Report Type: Report from Study
  Country: US (occurrence: US)
  Receive Date: 20240610
  Receipt Date: 20240905
  Transmission Date: 20241016
  Serious: Yes (Hospitalization)
  Sender: GILEAD
  Company Number: US-GILEAD-2024-0675796

PATIENT
  Age: 77 Year
  Sex: Female

DRUGS (2)
  1. AMBRISENTAN [Suspect]
     Active Substance: AMBRISENTAN
     Indication: Pulmonary arterial hypertension
     Dosage: 10 MG, QD
     Route: 065
     Dates: start: 20200728
  2. AMBRISENTAN [Suspect]
     Active Substance: AMBRISENTAN
     Indication: Pulmonary hypertension
     Dosage: 10 MG, QD
     Route: 065
     Dates: start: 20200728

REACTIONS (12)
  - Illness [Not Recovered/Not Resolved]
  - Seasonal allergy [Unknown]
  - Ear congestion [Unknown]
  - Pain [Not Recovered/Not Resolved]
  - Crying [Unknown]
  - Frustration tolerance decreased [Unknown]
  - Stress [Unknown]
  - Hypertension [Unknown]
  - Head discomfort [Unknown]
  - Emotional disorder [Unknown]
  - Nasal congestion [Unknown]
  - Dizziness [Unknown]

NARRATIVE: CASE EVENT DATE: 20240401
